FAERS Safety Report 5251390-1 (Version None)
Quarter: 2007Q1

REPORT INFORMATION
  Report Type: 
  Country: None (occurrence: None)
  Receive Date: 20070228
  Receipt Date: 20060605
  Transmission Date: 20070707
  Serious: No
  Sender: FDA-Public Use
  Company Number: US-GLAXOSMITHKLINE-A0604242A

PATIENT
  Age: 64 Year
  Sex: Female

DRUGS (2)
  1. LAMICTAL [Suspect]
     Indication: DEPRESSION
     Dosage: 25MG PER DAY
     Route: 048
     Dates: start: 20050808
  2. RITALIN [Concomitant]

REACTIONS (6)
  - HEADACHE [None]
  - LIP SWELLING [None]
  - OEDEMA MOUTH [None]
  - PRURITUS [None]
  - RASH [None]
  - SWELLING FACE [None]
